FAERS Safety Report 17018979 (Version 13)
Quarter: 2021Q2

REPORT INFORMATION
  Report Type: Other
  Country: GB (occurrence: GB)
  Receive Date: 20191112
  Receipt Date: 20210612
  Transmission Date: 20210716
  Serious: Yes (Other)
  Sender: FDA-Public Use
  Company Number: GB-ROCHE-2459272

PATIENT
  Age: 32 Year
  Sex: Male
  Weight: 90 kg

DRUGS (10)
  1. LOSARTAN. [Concomitant]
     Active Substance: LOSARTAN
     Indication: HYPERTENSION
     Route: 048
  2. FEIBA [Concomitant]
     Active Substance: ANTI-INHIBITOR COAGULANT COMPLEX
     Indication: HAEMORRHAGE
     Dates: start: 20190926
  3. EMICIZUMAB. [Suspect]
     Active Substance: EMICIZUMAB
     Indication: FACTOR VIII DEFICIENCY
     Dosage: ONCE A WEEK FOR 5 WEEKS, THEN EVERY 2 WEEKS
     Route: 058
     Dates: start: 20191009, end: 20191024
  4. EMICIZUMAB. [Suspect]
     Active Substance: EMICIZUMAB
     Route: 065
  5. NOVOSEVEN [Concomitant]
     Active Substance: COAGULATION FACTOR VIIA RECOMBINANT HUMAN
  6. PARACETAMOL [Concomitant]
     Active Substance: ACETAMINOPHEN
     Indication: PAIN
     Route: 048
  7. CLOPIDOGREL [Concomitant]
     Active Substance: CLOPIDOGREL BISULFATE
  8. AMLODIPINE [Concomitant]
     Active Substance: AMLODIPINE BESYLATE
     Indication: HYPERTENSION
     Route: 048
  9. BISOPROLOL [Concomitant]
     Active Substance: BISOPROLOL
     Indication: HYPERTENSION
     Route: 048
  10. TRAMADOL. [Concomitant]
     Active Substance: TRAMADOL
     Indication: PAIN
     Dosage: 50 TO 100 MG
     Route: 048

REACTIONS (9)
  - Cardiomyopathy [Recovering/Resolving]
  - Pain [Unknown]
  - Myocardial infarction [Recovering/Resolving]
  - Chest pain [Recovering/Resolving]
  - Ventricular hypertrophy [Recovering/Resolving]
  - Troponin I increased [Recovering/Resolving]
  - Myocardial infarction [Recovered/Resolved]
  - Road traffic accident [Recovered/Resolved]
  - Chest pain [Unknown]

NARRATIVE: CASE EVENT DATE: 20191025
